FAERS Safety Report 8357016-2 (Version None)
Quarter: 2012Q2

REPORT INFORMATION
  Report Type: 
  Country: None (occurrence: None)
  Receive Date: 20120510
  Receipt Date: 20120503
  Transmission Date: 20120825
  Serious: Yes (Hospitalization)
  Sender: FDA-Public Use
  Company Number: DSA_55617_2012

PATIENT
  Sex: Male

DRUGS (2)
  1. RESERPINE [Concomitant]
  2. XENAZINE [Suspect]
     Indication: TREMOR
     Dosage: (12. 5 MG QD ORAL)
     Route: 048
     Dates: start: 20111231

REACTIONS (3)
  - OSTEOMYELITIS [None]
  - MYOCARDIAL INFARCTION [None]
  - BLOOD BLISTER [None]
